FAERS Safety Report 24679964 (Version 2)
Quarter: 2025Q3

REPORT INFORMATION
  Report Type: Report from Study
  Country: ZA (occurrence: ZA)
  Receive Date: 20241129
  Receipt Date: 20250803
  Transmission Date: 20251020
  Serious: Yes (Hospitalization)
  Sender: ALEXION PHARMACEUTICALS
  Company Number: ZA-AstraZeneca-CH-00749988A

PATIENT
  Age: 78 Year
  Sex: Female

DRUGS (7)
  1. BUDESONIDE\FORMOTEROL [Suspect]
     Active Substance: BUDESONIDE\FORMOTEROL
     Indication: Asthma
  2. BUDESONIDE\FORMOTEROL [Suspect]
     Active Substance: BUDESONIDE\FORMOTEROL
  3. NIFEDIPINE [Concomitant]
     Active Substance: NIFEDIPINE
     Indication: Hypertension
  4. Adco alcophyllin [Concomitant]
  5. Austell clarithromycin [Concomitant]
  6. Belair [Concomitant]
     Indication: Asthma
  7. Spiractin [Concomitant]
     Indication: Rhinitis allergic

REACTIONS (1)
  - Renal disorder [Recovered/Resolved]
